FAERS Safety Report 16091591 (Version 1)
Quarter: 2019Q1

REPORT INFORMATION
  Report Type: Spontaneous
  Country: US (occurrence: US)
  Receive Date: 20190319
  Receipt Date: 20190319
  Transmission Date: 20190418
  Serious: Yes (Other)
  Sender: FDA-Public Use
  Company Number: US-MYLANLABS-2019M1024515

PATIENT

DRUGS (2)
  1. FLOMAX [Suspect]
     Active Substance: TAMSULOSIN HYDROCHLORIDE
     Indication: PRODUCT USED FOR UNKNOWN INDICATION
     Dosage: UNK
  2. TAMSULOSIN [Suspect]
     Active Substance: TAMSULOSIN
     Indication: NEPHROLITHIASIS
     Dosage: UNK
     Dates: start: 2015

REACTIONS (17)
  - Chest pain [Recovering/Resolving]
  - Mood swings [Recovering/Resolving]
  - Dizziness [Recovering/Resolving]
  - Anger [Recovering/Resolving]
  - Fatigue [Recovering/Resolving]
  - Frustration tolerance decreased [Recovering/Resolving]
  - Weight decreased [Recovering/Resolving]
  - Back pain [Recovering/Resolving]
  - Depression [Recovering/Resolving]
  - Erectile dysfunction [Recovering/Resolving]
  - Asthenia [Recovering/Resolving]
  - Feelings of worthlessness [Recovering/Resolving]
  - Vision blurred [Recovering/Resolving]
  - Suicidal ideation [Recovering/Resolving]
  - Tooth loss [Recovering/Resolving]
  - Decreased appetite [Recovering/Resolving]
  - Thinking abnormal [Recovering/Resolving]

NARRATIVE: CASE EVENT DATE: 201701
